FAERS Safety Report 17433620 (Version 3)
Quarter: 2020Q1

REPORT INFORMATION
  Report Type: Report from Study
  Country: None (occurrence: CH)
  Receive Date: 20200219
  Receipt Date: 20200312
  Transmission Date: 20200409
  Serious: Yes (Life-Threatening, Hospitalization)
  Sender: FDA-Public Use
  Company Number: CH-ABBVIE-20K-151-3280936-00

PATIENT
  Age: 73 Year
  Sex: Male

DRUGS (6)
  1. DUODOPA [Suspect]
     Active Substance: CARBIDOPA\LEVODOPA
     Dosage: DAY PUMP: MD:2.5 ML/H, CDR:4.4 ML/H, ED:2.5 ML?NIGHT PUMP: CNR: 2.9ML/H, ED: 1.8 ML/H
     Route: 050
     Dates: start: 20200217
  2. DUODOPA [Suspect]
     Active Substance: CARBIDOPA\LEVODOPA
     Indication: PARKINSON^S DISEASE
     Route: 050
     Dates: start: 20170208, end: 20190425
  3. DUODOPA [Suspect]
     Active Substance: CARBIDOPA\LEVODOPA
     Dosage: MD2.5 ML/H, CD RATE 4.4 ML/H,CONTINUOUS NIGHT RATE 0 ML/H, EXTRA DOSE:2.5 ML 16H THERAPY
     Route: 050
     Dates: start: 20190425, end: 20190425
  4. DUODOPA [Suspect]
     Active Substance: CARBIDOPA\LEVODOPA
     Dosage: MD: 0 ML/H, CD RATE: 0 ML/H, CONTINUOUS NIGHT RATE 2.9 ML/H,, ED:2.5 ML?24 H THERAPY
     Route: 050
     Dates: start: 20190425, end: 202002
  5. DUODOPA [Suspect]
     Active Substance: CARBIDOPA\LEVODOPA
     Dosage: MD: UNKNOWN, PARTIALLY ADMINISTERED, CDR: 0 ML/H, CNR 2.9 ML/H, ED:2.5ML?24H THERAPY
     Route: 050
     Dates: start: 202002, end: 202002
  6. DUODOPA [Suspect]
     Active Substance: CARBIDOPA\LEVODOPA
     Dosage: DAY :MD: PARTIALLY ADMINISTERED,CDR: 4.4 ML/H,ED: 2.5 ML?NIGHT :CNR:2.9ML/H, ED:1.8 ML/H
     Route: 050
     Dates: start: 202002, end: 20200217

REACTIONS (9)
  - Obstruction gastric [Recovered/Resolved]
  - Incorrect dose administered [Recovered/Resolved]
  - Abdominal pain [Unknown]
  - Device occlusion [Recovered/Resolved]
  - Obstruction gastric [Recovered/Resolved]
  - Vomiting [Recovered/Resolved]
  - Ileus paralytic [Recovering/Resolving]
  - Stoma site induration [Unknown]
  - Incorrect dose administered [Recovered/Resolved]

NARRATIVE: CASE EVENT DATE: 20200215
